FAERS Safety Report 9798789 (Version 3)
Quarter: 2014Q1

REPORT INFORMATION
  Report Type: Spontaneous
  Country: IT (occurrence: None)
  Receive Date: 20131231
  Receipt Date: 20140306
  Transmission Date: 20141002
  Serious: Yes (Hospitalization)
  Sender: FDA-Public Use
  Company Number: AUR-APL-2013-10898

PATIENT
  Age: 83 Year
  Sex: Male

DRUGS (4)
  1. RAMIPRIL [Suspect]
     Indication: PRODUCT USED FOR UNKNOWN INDICATION
     Route: 048
     Dates: start: 20100101, end: 20131119
  2. LASIX (FUROSEMIDE) [Concomitant]
  3. CARDIOASPIRIN (ACETYLSALICYLIC ACID) [Concomitant]
  4. TERAPROST (TERAZOSIN HYDROCHLORIDE) [Concomitant]

REACTIONS (3)
  - Hypokalaemia [None]
  - Renal failure acute [None]
  - Dehydration [None]
